FAERS Safety Report 8911687 (Version 1)
Quarter: 2012Q4

REPORT INFORMATION
  Report Type: 
  Country: GB (occurrence: GB)
  Receive Date: 20121116
  Receipt Date: 20121116
  Transmission Date: 20130627
  Serious: Yes (Other)
  Sender: FDA-Public Use
  Company Number: GB-JNJFOC-20121105571

PATIENT
  Age: 60 Year
  Sex: Female
  Weight: 77.11 kg

DRUGS (1)
  1. OXYBUTYNIN [Suspect]
     Indication: BLADDER DISORDER
     Route: 048
     Dates: start: 20120912, end: 20120928

REACTIONS (4)
  - Mouth ulceration [Recovered/Resolved]
  - Oesophageal ulcer [Recovered/Resolved]
  - Tongue ulceration [Recovered/Resolved]
  - Laryngeal ulceration [Recovered/Resolved]
